FAERS Safety Report 5278214-0 (Version None)
Quarter: 2007Q1

REPORT INFORMATION
  Report Type: 
  Country: None (occurrence: None)
  Receive Date: 20070328
  Receipt Date: 20070326
  Transmission Date: 20070707
  Serious: Yes (Other)
  Sender: FDA-Public Use
  Company Number: HK-BAYER-200711491GDS

PATIENT
  Age: 51 Year
  Sex: Male
  Weight: 95 kg

DRUGS (4)
  1. LEVITRA [Suspect]
     Indication: ERECTILE DYSFUNCTION
     Dosage: UNIT DOSE: 20 MG
     Route: 048
  2. NORVASC [Concomitant]
     Indication: HYPERTENSION
  3. INDAPAMIDE [Concomitant]
     Indication: HYPERTENSION
  4. ARCOXIA [Concomitant]
     Indication: OSTEOARTHRITIS
     Route: 065

REACTIONS (3)
  - ARTHRALGIA [None]
  - HEADACHE [None]
  - NASAL CONGESTION [None]
